FAERS Safety Report 10100167 (Version 2)
Quarter: 2014Q2

REPORT INFORMATION
  Report Type: Spontaneous
  Country: US (occurrence: US)
  Receive Date: 20140423
  Receipt Date: 20140423
  Transmission Date: 20141212
  Serious: No
  Sender: FDA-Public Use
  Company Number: US-GILEAD-2013-0075092

PATIENT
  Sex: Male

DRUGS (4)
  1. LETAIRIS [Suspect]
     Indication: PULMONARY ARTERIAL HYPERTENSION
     Dosage: 10 MG, QD
     Dates: start: 20120820
  2. ADCIRCA [Concomitant]
  3. TYVASO [Concomitant]
  4. WARFARIN [Concomitant]

REACTIONS (2)
  - Endoscopy [Unknown]
  - Colonoscopy [Unknown]
